FAERS Safety Report 8092254-8 (Version None)
Quarter: 2012Q1

REPORT INFORMATION
  Report Type: 
  Country: None (occurrence: None)
  Receive Date: 20120129
  Receipt Date: 20111104
  Transmission Date: 20120608
  Serious: No
  Sender: FDA-Public Use
  Company Number: US-ABBOTT-11P-163-0871763-00

PATIENT
  Sex: Female

DRUGS (2)
  1. TORADOL [Concomitant]
     Indication: MIGRAINE
  2. HUMIRA [Suspect]
     Indication: ANKYLOSING SPONDYLITIS
     Dates: start: 20111001

REACTIONS (1)
  - ADNEXA UTERI PAIN [None]
